FAERS Safety Report 7611999-4 (Version None)
Quarter: 2011Q3

REPORT INFORMATION
  Report Type: 
  Country: None (occurrence: None)
  Receive Date: 20110715
  Receipt Date: 20110706
  Transmission Date: 20111222
  Serious: Yes (Other)
  Sender: FDA-Public Use
  Company Number: JP-ELI_LILLY_AND_COMPANY-JP201107002526

PATIENT
  Age: 62 Year
  Sex: Male

DRUGS (1)
  1. GEMZAR [Suspect]
     Indication: PANCREATIC CARCINOMA STAGE IV
     Dosage: UNK
     Route: 042

REACTIONS (4)
  - SKIN ULCER [None]
  - PANCREATITIS [None]
  - RASH [None]
  - PANCREATITIS RELAPSING [None]
